FAERS Safety Report 9893218 (Version 1)
Quarter: 2014Q1

REPORT INFORMATION
  Report Type: Spontaneous
  Country: BR (occurrence: BR)
  Receive Date: 20140213
  Receipt Date: 20140213
  Transmission Date: 20141002
  Serious: Yes (Other)
  Sender: FDA-Public Use
  Company Number: PHHY2014BR016837

PATIENT
  Age: 87 Year
  Sex: Male

DRUGS (2)
  1. ONBREZ [Suspect]
     Dosage: 150 UG, UNK
     Route: 055
  2. ONBREZ [Suspect]
     Dosage: UNK
     Route: 048
     Dates: start: 20140210

REACTIONS (2)
  - Cerebrovascular accident [Unknown]
  - Incorrect route of drug administration [Unknown]
